FAERS Safety Report 6110194-8 (Version None)
Quarter: 2009Q1

REPORT INFORMATION
  Report Type: 
  Country: None (occurrence: None)
  Receive Date: 20090309
  Receipt Date: 20090309
  Transmission Date: 20090719
  Serious: Yes (Life-Threatening, Hospitalization)
  Sender: FDA-Public Use
  Company Number: None

PATIENT
  Sex: Male
  Weight: 99 kg

DRUGS (17)
  1. SIROLIMUS [Suspect]
     Indication: IMMUNOSUPPRESSION
     Dosage: 4MG QD PO
     Route: 048
     Dates: start: 20031210, end: 20060818
  2. SIROLIMUS [Suspect]
     Indication: LUNG TRANSPLANT
     Dosage: 4MG QD PO
     Route: 048
     Dates: start: 20031210, end: 20060818
  3. PROGRAF [Concomitant]
  4. PREDNISONE [Concomitant]
  5. BACTRIM [Concomitant]
  6. ZANTAC [Concomitant]
  7. FERROUS SULFATE TAB [Concomitant]
  8. FOLIC ACID [Concomitant]
  9. LASIX [Concomitant]
  10. MG OXIDE [Concomitant]
  11. M.V.I. [Concomitant]
  12. ZNC [Concomitant]
  13. PROTONIX [Concomitant]
  14. LIPITOR [Concomitant]
  15. REGULAR INSULIN [Concomitant]
  16. LANTUS [Concomitant]
  17. AMBIEN [Concomitant]

REACTIONS (6)
  - ABDOMINAL DISCOMFORT [None]
  - CLOSTRIDIAL INFECTION [None]
  - DIARRHOEA [None]
  - LOCAL SWELLING [None]
  - RENAL FAILURE ACUTE [None]
  - VENOUS THROMBOSIS [None]
